FAERS Safety Report 15983156 (Version 8)
Quarter: 2019Q3

REPORT INFORMATION
  Report Type: Spontaneous
  Country: CA (occurrence: CA)
  Receive Date: 20190220
  Receipt Date: 20190917
  Transmission Date: 20191004
  Serious: Yes (Hospitalization, Other)
  Sender: FDA-Public Use
  Company Number: CA-CELLTRION INC.-2018CA023397

PATIENT

DRUGS (23)
  1. INFLECTRA [Suspect]
     Active Substance: INFLIXIMAB-DYYB
     Dosage: 5 MG/KG, WEEKS 2, 6, THEN EVERY 8 WEEKS
     Route: 042
     Dates: start: 20180905
  2. INFLECTRA [Suspect]
     Active Substance: INFLIXIMAB-DYYB
     Dosage: 7.5 MG/KG, UNK
     Route: 042
  3. IMURAN [Concomitant]
     Active Substance: AZATHIOPRINE
     Dosage: UNK
     Dates: start: 20180821
  4. INFLECTRA [Suspect]
     Active Substance: INFLIXIMAB-DYYB
     Dosage: 5 MG/KG, WEEKS 2, 6, THEN EVERY 8 WEEKS
     Route: 042
     Dates: start: 20190205
  5. INFLECTRA [Suspect]
     Active Substance: INFLIXIMAB-DYYB
     Dosage: 5 MG/KG,EVERY 4 WEEKS
     Route: 042
     Dates: start: 20190511, end: 20190511
  6. PREDNISONE. [Concomitant]
     Active Substance: PREDNISONE
     Dosage: 45 MG, EVERY 4 WEEKS
  7. INFLECTRA [Suspect]
     Active Substance: INFLIXIMAB-DYYB
     Dosage: 5 MG/KG, (2, 6 THEN EVERY 8 WEEKS)
     Route: 042
     Dates: start: 20190511, end: 20190511
  8. INFLECTRA [Suspect]
     Active Substance: INFLIXIMAB-DYYB
     Dosage: UNK
     Dates: start: 20190315
  9. INFLECTRA [Suspect]
     Active Substance: INFLIXIMAB-DYYB
     Dosage: UNK
     Dates: start: 20190416
  10. INFLECTRA [Suspect]
     Active Substance: INFLIXIMAB-DYYB
     Dosage: 5 MG/KG,EVERY 4 WEEKS
     Route: 042
     Dates: start: 20190511, end: 20190511
  11. INFLECTRA [Suspect]
     Active Substance: INFLIXIMAB-DYYB
     Dosage: 5 MG/KG, WEEKS 4 WEEKS
     Route: 042
     Dates: start: 20190511, end: 20190511
  12. PREDNISONE. [Concomitant]
     Active Substance: PREDNISONE
     Dosage: 45 MG, EVERY 4 WEEKS
     Dates: start: 20190205
  13. INFLECTRA [Suspect]
     Active Substance: INFLIXIMAB-DYYB
     Indication: COLITIS ULCERATIVE
     Dosage: 5 MG/KG, WEEKS 2, 6, THEN EVERY 8 WEEKS
     Route: 042
     Dates: start: 20180822, end: 20190124
  14. INFLECTRA [Suspect]
     Active Substance: INFLIXIMAB-DYYB
     Dosage: 5 MG/KG, WEEKS 2, 6, THEN EVERY 8 WEEKS
     Route: 042
     Dates: start: 20190124, end: 20190124
  15. MEZAVANT [Concomitant]
     Active Substance: MESALAMINE
     Dosage: 4 DF (TABLET), DAILY
     Dates: start: 201801
  16. INFLECTRA [Suspect]
     Active Substance: INFLIXIMAB-DYYB
     Dosage: 5 MG/KG, WEEKS 2, 6, THEN EVERY 8 WEEKS
     Route: 042
     Dates: start: 20181128
  17. INFLECTRA [Suspect]
     Active Substance: INFLIXIMAB-DYYB
     Dosage: 5 MG/KG, WEEKS 2, 6, THEN EVERY 8 WEEKS
     Route: 042
     Dates: start: 20181003
  18. INFLECTRA [Suspect]
     Active Substance: INFLIXIMAB-DYYB
     Dosage: 7.5 MG/KG, WEEKS 2, 6, THEN EVERY 4 WEEKS
     Route: 042
     Dates: start: 20190205
  19. INFLECTRA [Suspect]
     Active Substance: INFLIXIMAB-DYYB
     Dosage: 2.5 MG/KG, RESCUE DOSE
     Route: 042
     Dates: start: 20190215, end: 20190215
  20. INFLECTRA [Suspect]
     Active Substance: INFLIXIMAB-DYYB
     Dosage: 5 MG/KG,EVERY 4 WEEKS
     Route: 042
     Dates: start: 20190205, end: 20190511
  21. SOLU-MEDROL [Concomitant]
     Active Substance: METHYLPREDNISOLONE SODIUM SUCCINATE
     Indication: COLITIS ULCERATIVE
     Dosage: UNK, 3X/DAY (ILLEGIBLE DOSE, Q8H)
     Route: 042
     Dates: start: 20180818
  22. PREDNISONE. [Concomitant]
     Active Substance: PREDNISONE
     Dosage: 45 MG, EVERY 4 WEEKS
     Dates: start: 20190315
  23. INFLECTRA [Suspect]
     Active Substance: INFLIXIMAB-DYYB
     Dosage: 7.5 MG/KG, WEEKS 2, 6, THEN EVERY 4 WEEKS
     Route: 042
     Dates: start: 20190205

REACTIONS (13)
  - Flank pain [Unknown]
  - Drug level below therapeutic [Unknown]
  - Nasal congestion [Unknown]
  - Diarrhoea [Unknown]
  - Appetite disorder [Unknown]
  - Condition aggravated [Recovered/Resolved]
  - Drug ineffective [Not Recovered/Not Resolved]
  - Condition aggravated [Unknown]
  - Peripheral swelling [Unknown]
  - Pyrexia [Unknown]
  - Inappropriate schedule of product administration [Unknown]
  - Off label use [Unknown]
  - Ear infection [Recovered/Resolved]

NARRATIVE: CASE EVENT DATE: 20181128
